FAERS Safety Report 25670915 (Version 1)
Quarter: 2025Q3

REPORT INFORMATION
  Report Type: Spontaneous
  Country: US (occurrence: US)
  Receive Date: 20250812
  Receipt Date: 20250812
  Transmission Date: 20251021
  Serious: No
  Sender: FRESENIUS KABI
  Company Number: US-FreseniusKabi-FK202510900

PATIENT
  Age: 47 Year
  Sex: Female
  Weight: 70.31 kg

DRUGS (4)
  1. METHYLPREDNISOLONE [Suspect]
     Active Substance: METHYLPREDNISOLONE
     Indication: Multiple sclerosis
     Dosage: FORM OF ADMIN: INJECTION?1 GRAM, ONCE DAILY FOR 3 DAYS?1ST DOSE
     Route: 042
     Dates: start: 20250729, end: 20250729
  2. METHYLPREDNISOLONE [Suspect]
     Active Substance: METHYLPREDNISOLONE
     Dosage: FORM OF ADMIN: INJECTION?1 GRAM, ONCE DAILY FOR 3 DAYS?2ND DOSE
     Route: 042
     Dates: start: 20250730, end: 20250730
  3. METHYLPREDNISOLONE [Suspect]
     Active Substance: METHYLPREDNISOLONE
     Dosage: FORM OF ADMIN: INJECTION?3RD DOSE WITHHELD
     Route: 042
     Dates: start: 20250731, end: 20250731
  4. GLYBURIDE [Concomitant]
     Active Substance: GLYBURIDE
     Indication: Diabetes mellitus

REACTIONS (3)
  - Malaise [Recovered/Resolved]
  - Blood glucose increased [Recovered/Resolved]
  - Blood pressure increased [Recovered/Resolved]

NARRATIVE: CASE EVENT DATE: 20250731
